FAERS Safety Report 8789465 (Version 1)
Quarter: 2012Q4

REPORT INFORMATION
  Report Type: Spontaneous
  Country: US (occurrence: None)
  Receive Date: 20120910
  Receipt Date: 20120910
  Transmission Date: 20130627
  Serious: Yes (Hospitalization, Other)
  Sender: FDA-Public Use
  Company Number: None

PATIENT
  Age: 25 Year
  Sex: Female
  Weight: 113.4 kg

DRUGS (1)
  1. MIRENA [Suspect]
     Dates: start: 20120212, end: 20120910

REACTIONS (5)
  - Anxiety [None]
  - Depression [None]
  - Mood swings [None]
  - Headache [None]
  - Weight increased [None]
